FAERS Safety Report 24039145 (Version 1)
Quarter: 2024Q3

REPORT INFORMATION
  Report Type: Spontaneous
  Country: US (occurrence: US)
  Receive Date: 20240702
  Receipt Date: 20240702
  Transmission Date: 20241016
  Serious: No
  Sender: ABBVIE
  Company Number: US-ABBVIE-5817673

PATIENT
  Age: 40 Year
  Sex: Female

DRUGS (6)
  1. SKYRIZI [Suspect]
     Active Substance: RISANKIZUMAB-RZAA
     Indication: Crohn^s disease
     Dosage: FORM STRENGTH: 360? FORM STRENGTH UNITS: MILLIGRAM
     Route: 058
     Dates: start: 20240613
  2. SKYRIZI [Suspect]
     Active Substance: RISANKIZUMAB-RZAA
     Indication: Pain
     Dosage: FORM STRENGTH: 360? FORM STRENGTH UNITS: MILLIGRAM
     Route: 058
     Dates: start: 20240625
  3. SKYRIZI [Suspect]
     Active Substance: RISANKIZUMAB-RZAA
     Indication: Pain
     Dosage: LAST ADMIN DATE -2024?FORM STRENGTH: 600?FORM STRENGTH UNITS: MILLIGRAM
     Route: 042
     Dates: start: 20240124
  4. OXYCODONE [Concomitant]
     Active Substance: OXYCODONE
     Indication: Pain
  5. PREDNISONE [Concomitant]
     Active Substance: PREDNISONE
     Indication: Product used for unknown indication
  6. MORPHINE [Concomitant]
     Active Substance: MORPHINE
     Indication: Pain

REACTIONS (4)
  - Abdominal pain [Not Recovered/Not Resolved]
  - Product preparation error [Not Recovered/Not Resolved]
  - Device issue [Not Recovered/Not Resolved]
  - Device issue [Not Recovered/Not Resolved]

NARRATIVE: CASE EVENT DATE: 20240608
